FAERS Safety Report 7649112-X (Version None)
Quarter: 2011Q3

REPORT INFORMATION
  Report Type: 
  Country: None (occurrence: None)
  Receive Date: 20110726
  Receipt Date: 20110715
  Transmission Date: 20111222
  Serious: Yes (Other)
  Sender: FDA-Public Use
  Company Number: 1714747-2011-00007

PATIENT
  Sex: Male
  Weight: 122 kg

DRUGS (1)
  1. STAY SAFE 2.5% DEX. LM 3L, 4PK [Suspect]
     Indication: RENAL FAILURE CHRONIC
     Dosage: INTRAPERITONEAL
     Route: 033
     Dates: start: 20110210

REACTIONS (8)
  - WRONG TECHNIQUE IN DRUG USAGE PROCESS [None]
  - STRESS [None]
  - UNEVALUABLE EVENT [None]
  - DRUG DOSE OMISSION [None]
  - INFECTIOUS PERITONITIS [None]
  - DEVICE BREAKAGE [None]
  - STAPHYLOCOCCUS TEST POSITIVE [None]
  - PRODUCT QUALITY ISSUE [None]
